FAERS Safety Report 9584699 (Version 1)
Quarter: 2013Q4

REPORT INFORMATION
  Report Type: Spontaneous
  Country: US (occurrence: US)
  Receive Date: 20131002
  Receipt Date: 20131002
  Transmission Date: 20140711
  Serious: No
  Sender: FDA-Public Use
  Company Number: US-AMGEN-USASP2013055271

PATIENT
  Age: 63 Year
  Sex: Female
  Weight: 76.64 kg

DRUGS (12)
  1. ENBREL [Suspect]
     Indication: PRODUCT USED FOR UNKNOWN INDICATION
     Dosage: 50 MG, UNK
     Route: 058
  2. PREDNISONE [Concomitant]
     Indication: VIITH NERVE PARALYSIS
     Dosage: 20 MG, UNK
  3. TEARS PLUS [Concomitant]
     Indication: VIITH NERVE PARALYSIS
     Dosage: UNK
  4. FENTANYL [Concomitant]
     Dosage: 12 MUG, PER HOUR
  5. PRAVASTATIN [Concomitant]
     Dosage: 10 MG, UNK
  6. TYLENOL                            /00020001/ [Concomitant]
     Dosage: 325 MG, UNK
  7. ATENOLOL [Concomitant]
     Dosage: 50 MG, UNK
  8. OMEPRAZOLE [Concomitant]
     Dosage: 10 MG, UNK
  9. LORAZEPAM [Concomitant]
     Dosage: 1 MG, UNK
  10. VENTOLIN HFA [Concomitant]
     Dosage: UNK
  11. LEXAPRO [Concomitant]
     Dosage: 5 MG, UNK
  12. TYLENOL WITH CODEINE NO.3 [Concomitant]
     Dosage: UNK

REACTIONS (1)
  - VIIth nerve paralysis [Unknown]
